FAERS Safety Report 6703657-5 (Version None)
Quarter: 2010Q2

REPORT INFORMATION
  Report Type: 
  Country: None (occurrence: None)
  Receive Date: 20100430
  Receipt Date: 20100420
  Transmission Date: 20101027
  Serious: Yes (Hospitalization)
  Sender: FDA-Public Use
  Company Number: AE-BRISTOL-MYERS SQUIBB COMPANY-15071434

PATIENT
  Age: 8 Month
  Sex: Female

DRUGS (1)
  1. BLEOMYCIN SULFATE [Suspect]
     Dosage: TOTAL DOSE 7MG
     Route: 026

REACTIONS (8)
  - ACUTE RESPIRATORY FAILURE [None]
  - CYANOSIS [None]
  - NO THERAPEUTIC RESPONSE [None]
  - PNEUMOMEDIASTINUM [None]
  - PNEUMOTHORAX [None]
  - PULMONARY FIBROSIS [None]
  - SUBCUTANEOUS EMPHYSEMA [None]
  - THROMBOSIS [None]
